FAERS Safety Report 11684615 (Version 4)
Quarter: 2016Q1

REPORT INFORMATION
  Report Type: Spontaneous
  Country: JP (occurrence: JP)
  Receive Date: 20151029
  Receipt Date: 20160223
  Transmission Date: 20160525
  Serious: No
  Sender: FDA-Public Use
  Company Number: JP-BAXTER-2015BAX058070

PATIENT
  Age: 0 Day

DRUGS (4)
  1. NITROGLYCERINE [Suspect]
     Active Substance: NITROGLYCERIN
     Indication: FOETAL EXPOSURE TIMING UNSPECIFIED
     Route: 064
     Dates: start: 20141125, end: 20141125
  2. SUPRANE [Suspect]
     Active Substance: DESFLURANE
     Indication: FOETAL EXPOSURE TIMING UNSPECIFIED
     Dosage: 6% AND GRADUALLY INCREASED TO 10%
     Route: 064
     Dates: start: 20141125, end: 20141125
  3. PHENYLEPHRINE [Suspect]
     Active Substance: PHENYLEPHRINE\PHENYLEPHRINE HYDROCHLORIDE
     Indication: FOETAL EXPOSURE TIMING UNSPECIFIED
     Route: 064
     Dates: start: 20141125, end: 20141125
  4. REMIFENTANIL [Suspect]
     Active Substance: REMIFENTANIL
     Indication: FOETAL EXPOSURE TIMING UNSPECIFIED
     Route: 064
     Dates: start: 20141125, end: 20141125

REACTIONS (2)
  - No adverse event [Recovered/Resolved]
  - Foetal exposure during pregnancy [Recovered/Resolved]

NARRATIVE: CASE EVENT DATE: 20141125
